FAERS Safety Report 13539146 (Version 1)
Quarter: 2017Q2

REPORT INFORMATION
  Report Type: Spontaneous
  Country: US (occurrence: US)
  Receive Date: 20170512
  Receipt Date: 20170512
  Transmission Date: 20170830
  Serious: No
  Sender: FDA-Public Use
  Company Number: US-009507513-1704USA006382

PATIENT
  Age: 12 Month
  Sex: Female

DRUGS (7)
  1. STERILE DILUENT [Suspect]
     Active Substance: WATER
     Dosage: UNK
     Dates: start: 20170412, end: 20170412
  2. PROQUAD [Suspect]
     Active Substance: MEASLES VIRUS STRAIN ENDERS^ ATTENUATED EDMONSTON LIVE ANTIGEN\MUMPS VIRUS STRAIN B LEVEL JERYL LYNN LIVE ANTIGEN\RUBELLA VIRUS STRAIN WISTAR RA 27/3 LIVE ANTIGEN\VARICELLA-ZOSTER VIRUS STRAIN OKA/MERCK LIVE ANTIGEN
     Indication: PROPHYLAXIS
     Dosage: .5 ML
     Route: 030
     Dates: start: 20170412, end: 20170412
  3. VARIVAX [Suspect]
     Active Substance: VARICELLA-ZOSTER VIRUS STRAIN OKA/MERCK LIVE ANTIGEN
     Indication: PROPHYLAXIS
  4. STERILE DILUENT [Suspect]
     Active Substance: WATER
     Dosage: UNK
     Route: 030
     Dates: start: 20170412, end: 20170412
  5. HEPATITIS A VACCINE NOS [Concomitant]
     Active Substance: HEPATITIS A VACCINE, INACTIVATED
     Dosage: UNK
     Dates: start: 20170412
  6. FLUTICASONE. [Concomitant]
     Active Substance: FLUTICASONE
     Dosage: UNK
  7. M-M-R II [Suspect]
     Active Substance: MEASLES VIRUS STRAIN ENDERS^ ATTENUATED EDMONSTON LIVE ANTIGEN\MUMPS VIRUS STRAIN B LEVEL JERYL LYNN LIVE ANTIGEN\RUBELLA VIRUS STRAIN WISTAR RA 27/3 LIVE ANTIGEN
     Indication: PROPHYLAXIS
     Dates: start: 20170412, end: 20170412

REACTIONS (4)
  - No adverse event [Unknown]
  - Inappropriate schedule of drug administration [Unknown]
  - Wrong drug administered [Unknown]
  - Incorrect route of drug administration [Unknown]

NARRATIVE: CASE EVENT DATE: 20170412
